FAERS Safety Report 12444146 (Version 1)
Quarter: 2016Q2

REPORT INFORMATION
  Report Type: Spontaneous
  Country: US (occurrence: US)
  Receive Date: 20160607
  Receipt Date: 20160607
  Transmission Date: 20160815
  Serious: No
  Sender: FDA-Public Use
  Company Number: US-SA-2016SA057323

PATIENT
  Age: 66 Year
  Sex: Female

DRUGS (4)
  1. LANTUS [Concomitant]
     Active Substance: INSULIN GLARGINE
  2. TOUJEO [Suspect]
     Active Substance: INSULIN GLARGINE
     Dosage: DOSE:32 UNIT(S)
     Route: 058
     Dates: start: 20160314, end: 20160317
  3. SOLOSTAR [Concomitant]
     Active Substance: DEVICE
     Dates: start: 20160314, end: 20160317
  4. LANTUS [Concomitant]
     Active Substance: INSULIN GLARGINE

REACTIONS (1)
  - Chest pain [Recovered/Resolved]
